FAERS Safety Report 9814029 (Version 1)
Quarter: 2014Q1

REPORT INFORMATION
  Report Type: Spontaneous
  Country: US (occurrence: US)
  Receive Date: 20140113
  Receipt Date: 20140113
  Transmission Date: 20141002
  Serious: Yes (Hospitalization)
  Sender: FDA-Public Use
  Company Number: US-MALLINCKRODT-T201305213

PATIENT
  Age: 84 Year
  Sex: Male

DRUGS (2)
  1. GABLOFEN [Suspect]
     Indication: MUSCLE SPASTICITY
     Dosage: 340 MCG/DAY (5 MCG/HR BASAL RATE AND 55 MCG Q6H)
     Route: 037
     Dates: start: 20131227
  2. GABLOFEN [Suspect]
     Dosage: 300 MCG/DAY (5 MCG/HR BASAL AND 45 MCG Q6H)
     Route: 037
     Dates: end: 20131227

REACTIONS (4)
  - Hypoxia [Recovering/Resolving]
  - Hypothermia [Recovering/Resolving]
  - Respiratory rate decreased [Recovered/Resolved]
  - Somnolence [Unknown]
